FAERS Safety Report 4429953-2 (Version None)
Quarter: 2004Q3

REPORT INFORMATION
  Report Type: 
  Country: None (occurrence: None)
  Receive Date: 20040820
  Receipt Date: 20040811
  Transmission Date: 20050211
  Serious: Yes (Hospitalization)
  Sender: FDA-Public Use
  Company Number: PHEH2004US08677

PATIENT
  Age: 61 Year
  Sex: Male

DRUGS (4)
  1. ZOMETA [Suspect]
     Indication: MULTIPLE MYELOMA
     Dosage: UNK, ONCE/SINGLE
     Route: 042
     Dates: start: 20040401, end: 20040401
  2. ARANESP [Suspect]
     Indication: ANAEMIA
     Dosage: UNK, QW
     Dates: start: 20040401, end: 20040501
  3. ANTIHYPERTENSIVES [Concomitant]
     Indication: HYPERTENSION
  4. DIURETICS [Concomitant]
     Indication: HYPERTENSION

REACTIONS (5)
  - BLOOD CALCIUM DECREASED [None]
  - CARDIAC FAILURE CONGESTIVE [None]
  - GOUT [None]
  - PYREXIA [None]
  - RENAL IMPAIRMENT [None]
